FAERS Safety Report 17413545 (Version 1)
Quarter: 2020Q1

REPORT INFORMATION
  Report Type: Spontaneous
  Country: US (occurrence: US)
  Receive Date: 20200213
  Receipt Date: 20200213
  Transmission Date: 20200409
  Serious: No
  Sender: FDA-Public Use
  Company Number: None

PATIENT
  Age: 73 Year
  Sex: Male
  Weight: 87.75 kg

DRUGS (6)
  1. MAGNESIUM [Concomitant]
     Active Substance: MAGNESIUM
  2. GENTLE IRON [Concomitant]
  3. IRON [Concomitant]
     Active Substance: IRON
  4. MELOXICAM. [Concomitant]
     Active Substance: MELOXICAM
  5. PANTOPROZOLE [Concomitant]
     Active Substance: PANTOPRAZOLE SODIUM
  6. PREGABALIN MFG TEVA [Suspect]
     Active Substance: PREGABALIN
     Indication: RESTLESS LEGS SYNDROME
     Dosage: ?          QUANTITY:90 CAPSULE(S);?
     Route: 048

REACTIONS (2)
  - Dyspnoea [None]
  - Wheezing [None]

NARRATIVE: CASE EVENT DATE: 20191228
